FAERS Safety Report 8919102 (Version 2)
Quarter: 2013Q1

REPORT INFORMATION
  Report Type: Spontaneous
  Country: IT (occurrence: None)
  Receive Date: 20121114
  Receipt Date: 20121204
  Transmission Date: 20140127
  Serious: Yes (Hospitalization)
  Sender: FDA-Public Use
  Company Number: 2012282097

PATIENT
  Age: 76 Year
  Sex: Female

DRUGS (4)
  1. FRAGMIN (DALTEPARIN SODIUM) SOLUTION FOR INJECTION [Suspect]
     Indication: THROMBOSIS PROPHYLAXIS
     Route: 058
     Dates: start: 20120701, end: 20121017
  2. QUETIAPINE [Concomitant]
  3. MADOPAR (BENSERAZIDE HYDROCHLORIDE, LEVODOPA) [Concomitant]
  4. DEPAKIN (VALPROAE SODIUM) [Concomitant]

REACTIONS (2)
  - Jaundice [None]
  - Transaminases increased [None]
